FAERS Safety Report 16781944 (Version 1)
Quarter: 2019Q4

REPORT INFORMATION
  Report Type: Spontaneous
  Country: US (occurrence: US)
  Receive Date: 20190906
  Receipt Date: 20190906
  Transmission Date: 20200122
  Serious: Yes (Other)
  Sender: FDA-Public Use
  Company Number: None

PATIENT
  Age: 72 Year
  Sex: Male
  Weight: 80.1 kg

DRUGS (2)
  1. LUPRON [Suspect]
     Active Substance: LEUPROLIDE ACETATE
     Indication: PROSTATE CANCER
     Dosage: ?          OTHER FREQUENCY:Q 3 MONTHS;?
     Route: 030
     Dates: start: 20190205, end: 20190906
  2. LUPRON [Suspect]
     Active Substance: LEUPROLIDE ACETATE
     Indication: BONE CANCER
     Dosage: ?          OTHER FREQUENCY:Q 3 MONTHS;?
     Route: 030
     Dates: start: 20190205, end: 20190906

REACTIONS (1)
  - Hot flush [None]

NARRATIVE: CASE EVENT DATE: 20190906
